FAERS Safety Report 5425984-4 (Version None)
Quarter: 2007Q3

REPORT INFORMATION
  Report Type: 
  Country: None (occurrence: None)
  Receive Date: 20070827
  Receipt Date: 20070814
  Transmission Date: 20080115
  Serious: Yes (Hospitalization)
  Sender: FDA-Public Use
  Company Number: US-AMGEN-US184186

PATIENT
  Sex: Male
  Weight: 79 kg

DRUGS (2)
  1. ARANESP [Suspect]
     Indication: RENAL FAILURE CHRONIC
     Route: 058
     Dates: start: 20060530, end: 20060619
  2. ZOCOR [Concomitant]

REACTIONS (9)
  - ASTHENIA [None]
  - BLOOD PRESSURE DECREASED [None]
  - DYSPNOEA [None]
  - FATIGUE [None]
  - MALAISE [None]
  - MELAENA [None]
  - OEDEMA [None]
  - PNEUMONIA [None]
  - WEIGHT DECREASED [None]
